FAERS Safety Report 24549266 (Version 1)
Quarter: 2024Q4

REPORT INFORMATION
  Report Type: Spontaneous
  Country: CA (occurrence: CA)
  Receive Date: 20241025
  Receipt Date: 20241025
  Transmission Date: 20250115
  Serious: Yes (Other)
  Sender: SANDOZ
  Company Number: CA-SANDOZ-SDZ2024CA089231

PATIENT
  Age: 66 Year
  Sex: Female

DRUGS (1)
  1. ERELZI [Suspect]
     Active Substance: ETANERCEPT-SZZS
     Indication: Product used for unknown indication
     Dosage: UNK
     Route: 065

REACTIONS (36)
  - Arthralgia [Unknown]
  - Back pain [Unknown]
  - Blindness [Unknown]
  - Blood disorder [Unknown]
  - Blood pressure abnormal [Unknown]
  - Burning sensation [Unknown]
  - Cataract [Unknown]
  - Conjunctival oedema [Unknown]
  - Electric shock [Unknown]
  - Eye disorder [Unknown]
  - Eye infection [Unknown]
  - Feeling abnormal [Unknown]
  - Fibromyalgia [Unknown]
  - Gingivitis [Unknown]
  - Head discomfort [Unknown]
  - Hyperhidrosis [Unknown]
  - Hypertension [Unknown]
  - Hypoaesthesia [Unknown]
  - Joint stiffness [Unknown]
  - Limb discomfort [Unknown]
  - Macular hole [Unknown]
  - Migraine [Unknown]
  - Muscular weakness [Unknown]
  - Myalgia [Unknown]
  - Osteoarthritis [Unknown]
  - Pain [Unknown]
  - Paraesthesia [Unknown]
  - Retinal tear [Unknown]
  - SARS-CoV-2 test positive [Unknown]
  - Stress [Unknown]
  - Swelling face [Unknown]
  - Urinary tract infection [Unknown]
  - Viral infection [Unknown]
  - Visual impairment [Unknown]
  - Wound [Unknown]
  - Product dose omission in error [Unknown]
